FAERS Safety Report 6058834-6 (Version None)
Quarter: 2009Q1

REPORT INFORMATION
  Report Type: 
  Country: None (occurrence: None)
  Receive Date: 20090130
  Receipt Date: 20090123
  Transmission Date: 20090719
  Serious: Yes (Hospitalization, Other)
  Sender: FDA-Public Use
  Company Number: US-ASTRAZENECA-2009UW02092

PATIENT
  Sex: Male

DRUGS (3)
  1. SEROQUEL [Suspect]
     Indication: MENTAL DISORDER
     Route: 048
     Dates: start: 20000101, end: 20080801
  2. WELLBUTRIN [Suspect]
     Indication: MENTAL DISORDER
     Route: 048
     Dates: start: 20000101, end: 20080801
  3. ZYPREXA [Suspect]
     Indication: MENTAL DISORDER
     Dosage: 40 MG OR 100 MG TWICE A DAY
     Dates: start: 20000101, end: 20080801

REACTIONS (6)
  - BALANCE DISORDER [None]
  - BRAIN INJURY [None]
  - CARDIAC DISORDER [None]
  - LIVER DISORDER [None]
  - SKIN PAPILLOMA [None]
  - VISUAL ACUITY REDUCED [None]
